FAERS Safety Report 16341801 (Version 2)
Quarter: 2020Q2

REPORT INFORMATION
  Report Type: Report from Study
  Country: KR (occurrence: KR)
  Receive Date: 20190522
  Receipt Date: 20200415
  Transmission Date: 20200713
  Serious: Yes (Other)
  Sender: FDA-Public Use
  Company Number: KR-ROCHE-2321927

PATIENT
  Age: 70 Year
  Sex: Male

DRUGS (6)
  1. PENIRAMIN [Concomitant]
     Route: 042
     Dates: start: 20180515
  2. CORTISOLU [Concomitant]
     Active Substance: HYDROCORTISONE SODIUM SUCCINATE
     Route: 042
     Dates: start: 20180515
  3. RITUXIMAB. [Suspect]
     Active Substance: RITUXIMAB
     Dosage: DATE OF TREATMENT: 15/JAN/2019, 12/MAR/2019, 07/MAY/2019, 02/JUL/2019, 27/AUG/2019, 22/OCT/2019, 17/
     Route: 058
     Dates: start: 20181106
  4. RITUXIMAB. [Suspect]
     Active Substance: RITUXIMAB
     Indication: NON-HODGKIN^S LYMPHOMA
     Route: 058
     Dates: start: 20180515
  5. RITUXIMAB. [Suspect]
     Active Substance: RITUXIMAB
     Route: 058
     Dates: start: 20180710
  6. RITUXIMAB. [Suspect]
     Active Substance: RITUXIMAB
     Route: 058
     Dates: start: 20180904

REACTIONS (2)
  - Bronchiectasis [Recovered/Resolved]
  - Asthma [Recovering/Resolving]

NARRATIVE: CASE EVENT DATE: 20190507
